FAERS Safety Report 20576044 (Version 1)
Quarter: 2022Q1

REPORT INFORMATION
  Report Type: Spontaneous
  Country: US (occurrence: US)
  Receive Date: 20220310
  Receipt Date: 20220310
  Transmission Date: 20220423
  Serious: No
  Sender: FDA-Public Use
  Company Number: US-AUROBINDO-AUR-APL-2021-036586

PATIENT
  Sex: Male

DRUGS (2)
  1. LEVETIRACETAM [Suspect]
     Active Substance: LEVETIRACETAM
     Indication: Seizure
     Dosage: 4.5 MILLILITER, ONCE A DAY (IN THE MORNING)
     Route: 048
  2. LEVETIRACETAM [Suspect]
     Active Substance: LEVETIRACETAM
     Dosage: 5 MILLILITER, ONCE A DAY (IN THE EVENING)
     Route: 048

REACTIONS (4)
  - Rash [Unknown]
  - Product physical consistency issue [Unknown]
  - Product quality issue [Unknown]
  - Product odour abnormal [Unknown]
